FAERS Safety Report 19237984 (Version 1)
Quarter: 2021Q2

REPORT INFORMATION
  Report Type: Spontaneous
  Country: US (occurrence: US)
  Receive Date: 20210510
  Receipt Date: 20210510
  Transmission Date: 20210717
  Serious: No
  Sender: FDA-Public Use
  Company Number: US-ALKERMES INC.-ALK-2021-002248

PATIENT
  Age: 33 Year
  Sex: Female

DRUGS (3)
  1. ARISTADA [Suspect]
     Active Substance: ARIPIPRAZOLE LAUROXIL
     Dosage: 882 MILLIGRAM, QMO
     Route: 030
  2. DEPAKOTE [Concomitant]
     Active Substance: DIVALPROEX SODIUM
     Indication: BIPOLAR DISORDER
     Dosage: UNK
     Route: 048
  3. ARISTADA [Suspect]
     Active Substance: ARIPIPRAZOLE LAUROXIL
     Indication: BIPOLAR DISORDER
     Dosage: 882 MILLIGRAM, QMO
     Route: 030

REACTIONS (16)
  - Somatic symptom disorder [Recovered/Resolved]
  - Tachyphrenia [Recovered/Resolved]
  - Catatonia [Not Recovered/Not Resolved]
  - Injection site erythema [Recovered/Resolved]
  - Cyclothymic disorder [Unknown]
  - Injection site pain [Recovered/Resolved]
  - Paranoia [Not Recovered/Not Resolved]
  - Somatic delusion [Not Recovered/Not Resolved]
  - Insomnia [Recovered/Resolved]
  - Injection site swelling [Recovered/Resolved]
  - Psychotic symptom [Not Recovered/Not Resolved]
  - Mania [Recovered/Resolved]
  - Disinhibition [Not Recovered/Not Resolved]
  - Product administered at inappropriate site [Recovered/Resolved]
  - Irritability [Recovered/Resolved]
  - Pressure of speech [Recovered/Resolved]
